FAERS Safety Report 23755968 (Version 1)
Quarter: 2024Q2

REPORT INFORMATION
  Report Type: Spontaneous
  Country: US (occurrence: US)
  Receive Date: 20240418
  Receipt Date: 20240418
  Transmission Date: 20240716
  Serious: No
  Sender: FDA-Public Use
  Company Number: US-BAYER-2024A047650

PATIENT
  Age: 55 Year
  Sex: Female

DRUGS (3)
  1. ASTEPRO [Suspect]
     Active Substance: AZELASTINE HYDROCHLORIDE
     Indication: Hypersensitivity
     Dosage: 1 SPRAY IN EACH NOSETRILL ONCE DAILY
     Route: 045
  2. ASTEPRO [Suspect]
     Active Substance: AZELASTINE HYDROCHLORIDE
     Indication: Nasopharyngitis
     Dosage: 1 SPRAY IN EACH NOSETRILL ONCE DAILY
     Route: 045
     Dates: start: 202401, end: 202402
  3. VITAMINS NOS [Concomitant]
     Active Substance: VITAMINS

REACTIONS (4)
  - Nasal discomfort [Unknown]
  - Nasal discomfort [Unknown]
  - Skin exfoliation [Unknown]
  - Erythema [Unknown]
